FAERS Safety Report 12995365 (Version 6)
Quarter: 2017Q1

REPORT INFORMATION
  Report Type: Spontaneous
  Country: US (occurrence: US)
  Receive Date: 20161202
  Receipt Date: 20170210
  Transmission Date: 20170428
  Serious: Yes (Hospitalization, Other)
  Sender: FDA-Public Use
  Company Number: US-PFIZER INC-2016558784

PATIENT
  Age: 61 Year
  Sex: Female
  Weight: 61 kg

DRUGS (4)
  1. ADVIL [Concomitant]
     Active Substance: IBUPROFEN
     Indication: PAIN
     Dosage: 200 MG, (ONE TABLET ON AND OFF)
  2. XELJANZ [Suspect]
     Active Substance: TOFACITINIB CITRATE
     Dosage: 5 MG, 2X/DAY
     Route: 048
     Dates: start: 20161031, end: 20161105
  3. XELJANZ [Suspect]
     Active Substance: TOFACITINIB CITRATE
     Indication: RHEUMATOID ARTHRITIS
     Dosage: 5 MG, 2X/DAY
     Route: 048
     Dates: start: 20161114, end: 20161121
  4. ARMOUR THYROID [Concomitant]
     Active Substance: THYROID, PORCINE
     Indication: HYPOTHYROIDISM
     Dosage: 60 MG, 1X/DAY (60MG ONCE IN THE MORNING)

REACTIONS (11)
  - Rash generalised [Recovered/Resolved]
  - Eye swelling [Unknown]
  - Eye irritation [Unknown]
  - Skin exfoliation [Recovered/Resolved]
  - Photosensitivity reaction [Unknown]
  - Dry skin [Recovered/Resolved]
  - Eye pruritus [Unknown]
  - Erythema [Recovered/Resolved]
  - Swelling face [Recovered/Resolved]
  - Ocular hyperaemia [Unknown]
  - Lacrimation increased [Unknown]

NARRATIVE: CASE EVENT DATE: 20161105
